FAERS Safety Report 21857783 (Version 1)
Quarter: 2023Q1

REPORT INFORMATION
  Report Type: Spontaneous
  Country: US (occurrence: US)
  Receive Date: 20230113
  Receipt Date: 20230113
  Transmission Date: 20230418
  Serious: No
  Sender: FDA-Public Use
  Company Number: US-drreddys-SPO/USA/22/0158463

PATIENT
  Age: 77 Year
  Sex: Male

DRUGS (26)
  1. LENALIDOMIDE [Suspect]
     Active Substance: LENALIDOMIDE
     Indication: Glaucoma
     Dates: start: 20160727
  2. LENALIDOMIDE [Suspect]
     Active Substance: LENALIDOMIDE
     Dates: start: 20221010
  3. MEMANTINE HYDROCHLORIDE [Concomitant]
     Active Substance: MEMANTINE HYDROCHLORIDE
     Indication: Product used for unknown indication
  4. OMEPRAZOLE [Concomitant]
     Active Substance: OMEPRAZOLE
     Indication: Product used for unknown indication
  5. DEXAMETHASONE SODIUM PHOSPHATE [Concomitant]
     Active Substance: DEXAMETHASONE SODIUM PHOSPHATE
     Indication: Product used for unknown indication
  6. Valsartan Tablets USP 40 mg, 80 mg, 160 mg, and 320 mg [Concomitant]
     Indication: Product used for unknown indication
  7. ATORVASTATIN TAB 20MG [Concomitant]
     Indication: Product used for unknown indication
  8. GABAPENTIN TAB 600MG [Concomitant]
     Indication: Product used for unknown indication
  9. MAGNESIUM TAB 400MG [Concomitant]
     Indication: Product used for unknown indication
  10. TUMERSAID TAB [Concomitant]
     Indication: Product used for unknown indication
  11. ASHWAGANDHA CAP 500MG [Concomitant]
     Indication: Product used for unknown indication
  12. BRIMONIDINE SOL 0.2 PERCENT [Concomitant]
     Indication: Product used for unknown indication
     Dosage: SOL 0.2 PERCENT
  13. COQ10 CAP 400MG [Concomitant]
     Indication: Product used for unknown indication
  14. FUROSEMIDE TAB 20MG [Concomitant]
     Indication: Product used for unknown indication
  15. LOSARTAN POT TAB 100MG [Concomitant]
     Indication: Product used for unknown indication
  16. MELATONIN SUB 10MG [Concomitant]
     Indication: Product used for unknown indication
  17. NIACIN TAB 500MG [Concomitant]
     Indication: Product used for unknown indication
  18. NOVO IN 70/3 SUS (70-30) [Concomitant]
     Indication: Product used for unknown indication
  19. NOVOLIN N RE SUS 100UNIT/ [Concomitant]
     Indication: Product used for unknown indication
     Dosage: 100 UNIT
  20. SILDENAFIL C TAB 100MG [Concomitant]
     Indication: Product used for unknown indication
  21. TRAVOPROST ( SOL 0.004 percent [Concomitant]
     Indication: Product used for unknown indication
     Dosage: SOL 0.004 PERCENT
  22. TYLENOL TAB 325MG [Concomitant]
     Indication: Product used for unknown indication
  23. VITAMIN D TAB 25 MCG(1000 [Concomitant]
     Indication: Product used for unknown indication
  24. ZINC TAB 100MG [Concomitant]
     Indication: Product used for unknown indication
  25. ASPIRIN TBE 81MG [Concomitant]
     Indication: Product used for unknown indication
  26. FLOMAX [Concomitant]
     Active Substance: TAMSULOSIN HYDROCHLORIDE
     Indication: Product used for unknown indication

REACTIONS (4)
  - Papule [Not Recovered/Not Resolved]
  - Tremor [Not Recovered/Not Resolved]
  - Back pain [Not Recovered/Not Resolved]
  - Oropharyngeal pain [Not Recovered/Not Resolved]
